FAERS Safety Report 16181425 (Version 1)
Quarter: 2019Q2

REPORT INFORMATION
  Report Type: Spontaneous
  Country: CN (occurrence: CN)
  Receive Date: 20190410
  Receipt Date: 20190410
  Transmission Date: 20190711
  Serious: Yes (Hospitalization, Other)
  Sender: FDA-Public Use
  Company Number: CN-TOLMAR, INC.-TOLG20192209

PATIENT
  Age: 57 Year
  Sex: Male

DRUGS (2)
  1. LEVOFLOXACIN. [Concomitant]
     Active Substance: LEVOFLOXACIN
     Indication: SINUSITIS
     Dosage: 200 MG
     Route: 048
  2. METRONIDAZOLE. [Suspect]
     Active Substance: METRONIDAZOLE
     Indication: SINUSITIS
     Dosage: 400 MG
     Route: 048

REACTIONS (12)
  - Muscular weakness [Recovered/Resolved]
  - Balance disorder [Recovered/Resolved]
  - Confusional state [Recovered/Resolved]
  - Toxic encephalopathy [Recovered/Resolved]
  - Dysarthria [Recovered/Resolved]
  - Extensor plantar response [Recovered/Resolved]
  - Ataxia [Recovered/Resolved]
  - Condition aggravated [Recovered/Resolved]
  - Gait inability [Recovered/Resolved]
  - Nystagmus [Recovered/Resolved]
  - Dysstasia [Recovered/Resolved]
  - Eye movement disorder [Recovered/Resolved]
